FAERS Safety Report 13367473 (Version 1)
Quarter: 2017Q1

REPORT INFORMATION
  Report Type: Spontaneous
  Country: TR (occurrence: TR)
  Receive Date: 20170324
  Receipt Date: 20170324
  Transmission Date: 20170429
  Serious: Yes (Death)
  Sender: FDA-Public Use
  Company Number: TR-UCBSA-2017011267

PATIENT
  Age: 10 Year
  Sex: Male
  Weight: 28 kg

DRUGS (21)
  1. ETOPOSIDE. [Concomitant]
     Active Substance: ETOPOSIDE
     Indication: ACUTE LEUKAEMIA
     Dosage: 150 MG/M2/D; DAYS 6-8
  2. LEVETIRACETAM. [Suspect]
     Active Substance: LEVETIRACETAM
     Indication: GENERALISED TONIC-CLONIC SEIZURE
     Dosage: UNKNOWN DOSE
  3. ARA-C [Concomitant]
     Active Substance: CYTARABINE
     Indication: ACUTE LEUKAEMIA
     Dosage: 100 MG/M2/D; DAYS 1 TO 3
     Route: 042
  4. ARA-C [Concomitant]
     Active Substance: CYTARABINE
     Dosage: (3000 MG/M2/DOSE) EVERY 12 HOURS FOR 6 DOSES (DAYS 1 TO 3)
     Route: 037
  5. MIDAZOLAM [Concomitant]
     Active Substance: MIDAZOLAM HYDROCHLORIDE
     Indication: GENERALISED TONIC-CLONIC SEIZURE
     Dosage: 0.1MG/KG
     Route: 042
  6. IDARUBICIN [Concomitant]
     Active Substance: IDARUBICIN
     Dosage: 12 MG/M2/D; DAYS 2 TO 4
  7. MITOXANTRONE [Concomitant]
     Active Substance: MITOXANTRONE HYDROCHLORIDE
     Indication: ACUTE LEUKAEMIA
     Dosage: 10 MG/M2/D; DAYS 3 AND 4
  8. PHENYTOIN. [Concomitant]
     Active Substance: PHENYTOIN
     Dosage: MAINTENANCE DOSE OF 6 TO 7MG/KG IN 2 DIVIDED DOSES)
  9. ARA-C [Concomitant]
     Active Substance: CYTARABINE
     Dosage: 1000 MG/M2/D; DAYS 1 TO 5
  10. ARA-C [Concomitant]
     Active Substance: CYTARABINE
     Dosage: 40 MG ON DAY 1
     Route: 037
  11. ARA-C [Concomitant]
     Active Substance: CYTARABINE
     Indication: ACUTE LEUKAEMIA
     Dosage: 40 MG; DAYS 1 AND 8
     Route: 037
  12. ARA-C [Concomitant]
     Active Substance: CYTARABINE
     Dosage: UNK
     Route: 037
  13. SORAFENIB [Concomitant]
     Active Substance: SORAFENIB
     Indication: ACUTE LEUKAEMIA
     Dosage: 100MG TWICE DAILY FOR 28 D
  14. ARA-C [Concomitant]
     Active Substance: CYTARABINE
     Dosage: 100 MG/M2/DOSE AT 12-HOUR INTERVALS (DAYS 3 TO 8)
  15. ARA-C [Concomitant]
     Active Substance: CYTARABINE
     Dosage: UNKNOWN DOSE
  16. FLUDARABINE [Concomitant]
     Active Substance: FLUDARABINE PHOSPHATE
     Indication: ACUTE LEUKAEMIA
     Dosage: 30 MG/M2/D; DAYS 1 TO 4
  17. ARA-C [Concomitant]
     Active Substance: CYTARABINE
     Dosage: 2000 MG/M2/D; DAYS 1 TO 4
  18. IDARUBICIN [Concomitant]
     Active Substance: IDARUBICIN
     Indication: ACUTE LEUKAEMIA
     Dosage: 12 MG/M2/D; DAYS 3, 5, AND 7
  19. CLOFARABINE [Concomitant]
     Active Substance: CLOFARABINE
     Indication: ACUTE LEUKAEMIA
     Dosage: 40 MG/M2/D; DAYS 1 TO 5
  20. CLOFARABINE [Concomitant]
     Active Substance: CLOFARABINE
     Dosage: UNKNOWN DOSE
  21. PHENYTOIN. [Concomitant]
     Active Substance: PHENYTOIN
     Indication: GENERALISED TONIC-CLONIC SEIZURE
     Dosage: LOADING DOSE OF 10MG/KG IN 2 DOSES

REACTIONS (1)
  - Death [Fatal]
